FAERS Safety Report 15554811 (Version 1)
Quarter: 2018Q4

REPORT INFORMATION
  Report Type: Spontaneous
  Country: US (occurrence: US)
  Receive Date: 20181026
  Receipt Date: 20181026
  Transmission Date: 20190205
  Serious: Yes (Life-Threatening, Hospitalization)
  Sender: FDA-Public Use
  Company Number: None

PATIENT
  Age: 52 Year
  Sex: Female
  Weight: 94.2 kg

DRUGS (6)
  1. NIVOLUMAB [Suspect]
     Active Substance: NIVOLUMAB
     Indication: HEPATOCELLULAR CARCINOMA
     Dosage: ?          OTHER FREQUENCY:ONCE;?
     Route: 042
     Dates: start: 20181024, end: 20181024
  2. LISINOPRIL-HYDROCHLOROTHIAZIDE [Concomitant]
     Active Substance: HYDROCHLOROTHIAZIDE\LISINOPRIL
     Dates: end: 20181024
  3. TRAZODONE [Concomitant]
     Active Substance: TRAZODONE HYDROCHLORIDE
     Dates: end: 20181024
  4. SERTRALINE [Concomitant]
     Active Substance: SERTRALINE HYDROCHLORIDE
  5. FEBUXOSTAT. [Concomitant]
     Active Substance: FEBUXOSTAT
  6. METOPROLOL. [Concomitant]
     Active Substance: METOPROLOL

REACTIONS (10)
  - Chest discomfort [None]
  - Dyspnoea [None]
  - Hypotension [None]
  - Hypoglycaemia [None]
  - Hypomagnesaemia [None]
  - Feeling hot [None]
  - Loss of consciousness [None]
  - Cold sweat [None]
  - Apnoea [None]
  - Disorientation [None]

NARRATIVE: CASE EVENT DATE: 20181024
